FAERS Safety Report 8828945 (Version 3)
Quarter: 2012Q4

REPORT INFORMATION
  Report Type: 
  Country: IT (occurrence: IT)
  Receive Date: 20121008
  Receipt Date: 20121116
  Transmission Date: 20130627
  Serious: Yes (Hospitalization, Other)
  Sender: FDA-Public Use
  Company Number: IT-ROCHE-1142860

PATIENT
  Sex: Male

DRUGS (4)
  1. LUCENTIS [Suspect]
     Indication: AGE-RELATED MACULAR DEGENERATION
     Route: 050
     Dates: start: 20120910
  2. METFORAL [Concomitant]
     Dosage: 500 tablet
     Route: 065
     Dates: start: 20111027, end: 20120929
  3. NOVONORM [Concomitant]
     Route: 065
     Dates: start: 20111227, end: 20120929
  4. CITALOPRAM [Concomitant]
     Dosage: 4 drops
     Route: 065
     Dates: start: 20111227

REACTIONS (12)
  - Ischaemic stroke [Unknown]
  - Subarachnoid haemorrhage [Unknown]
  - Myocardial ischaemia [Unknown]
  - Haemorrhagic stroke [Recovering/Resolving]
  - Left atrial hypertrophy [Unknown]
  - Left ventricular hypertrophy [Unknown]
  - Atrial fibrillation [Unknown]
  - Cardiac ventricular disorder [Unknown]
  - Heart valve incompetence [Unknown]
  - Heart valve calcification [Unknown]
  - Haematuria [Unknown]
  - Epilepsy [Unknown]
